FAERS Safety Report 5061399-9 (Version None)
Quarter: 2006Q3

REPORT INFORMATION
  Report Type: 
  Country: None (occurrence: None)
  Receive Date: 20060719
  Receipt Date: 20060719
  Transmission Date: 20061208
  Serious: Yes (Hospitalization)
  Sender: FDA-Public Use
  Company Number: None

PATIENT
  Age: 78 Year
  Sex: Male

DRUGS (11)
  1. LOSARTAN POSTASSIUM [Suspect]
     Indication: HYPERTENSION
     Dosage: 25 MG QD
     Dates: start: 20060501
  2. DILTIAZEM HCL [Suspect]
     Indication: HYPERTENSION
     Dosage: 360 MG QD
     Dates: start: 20041001
  3. FUROSEMIDE [Suspect]
     Indication: HYPERTENSION
     Dosage: 40 MG QAM 20MG QPM
     Dates: start: 20041001
  4. PLAVIX [Concomitant]
  5. GLIPIZIDE [Concomitant]
  6. SERTRALINE [Concomitant]
  7. ZOCOR [Concomitant]
  8. FINASTERIDE [Concomitant]
  9. TAMSULOSIN HCL [Concomitant]
  10. CILOSTAZOL [Concomitant]
  11. OSCAL [Concomitant]

REACTIONS (1)
  - DIZZINESS POSTURAL [None]
